FAERS Safety Report 8596129-7 (Version None)
Quarter: 2012Q3

REPORT INFORMATION
  Report Type: 
  Country: None (occurrence: None)
  Receive Date: 20120807
  Receipt Date: 20120807
  Transmission Date: 20120928
  Serious: Yes (Other)
  Sender: FDA-Public Use
  Company Number: None

PATIENT
  Age: 61 Year
  Sex: Female
  Weight: 65.318 kg

DRUGS (2)
  1. IBANDRONATE SODIUM [Suspect]
     Indication: OSTEOPOROSIS
     Dosage: 150 MG 1 PER MONTH
     Dates: start: 20120425, end: 20120525
  2. IBANDRONATE SODIUM [Suspect]
     Indication: OSTEOPOROSIS
     Dosage: 150 MG 1 PER MONTH
     Dates: start: 20120625

REACTIONS (6)
  - PAIN IN EXTREMITY [None]
  - NAUSEA [None]
  - INADEQUATE ANALGESIA [None]
  - ARTHRALGIA [None]
  - MUSCULOSKELETAL PAIN [None]
  - BACK PAIN [None]
